FAERS Safety Report 5201022-3 (Version None)
Quarter: 2007Q1

REPORT INFORMATION
  Report Type: 
  Country: None (occurrence: None)
  Receive Date: 20070108
  Receipt Date: 20070103
  Transmission Date: 20070707
  Serious: Yes (Other)
  Sender: FDA-Public Use
  Company Number: GB-GLAXOSMITHKLINE-B0453091A

PATIENT
  Age: 54 Year
  Sex: Male

DRUGS (47)
  1. AMOXICILLIN [Suspect]
     Indication: DRUG USE FOR UNKNOWN INDICATION
     Dosage: 1G THREE TIMES PER DAY
     Route: 042
  2. ACTRAPID [Suspect]
     Indication: DRUG USE FOR UNKNOWN INDICATION
     Route: 042
  3. ALFENTANIL [Suspect]
     Indication: DRUG USE FOR UNKNOWN INDICATION
     Route: 065
  4. AQUASEPT [Suspect]
     Indication: DRUG USE FOR UNKNOWN INDICATION
     Route: 065
  5. BACTROBAN [Suspect]
     Indication: DRUG USE FOR UNKNOWN INDICATION
     Route: 065
  6. CALCIUM CHLORIDE [Suspect]
     Indication: DRUG USE FOR UNKNOWN INDICATION
     Route: 065
  7. CALCIUM GLUCONATE [Suspect]
     Indication: DRUG USE FOR UNKNOWN INDICATION
     Route: 042
  8. CEFTRIAXONE [Suspect]
     Indication: DRUG USE FOR UNKNOWN INDICATION
     Route: 042
  9. CLEXANE [Suspect]
     Indication: DRUG USE FOR UNKNOWN INDICATION
     Dosage: 20MG PER DAY
     Route: 058
  10. DOBUTAMINE HCL [Suspect]
     Indication: DRUG USE FOR UNKNOWN INDICATION
     Route: 065
  11. FLUCONAZOLE [Suspect]
     Indication: DRUG USE FOR UNKNOWN INDICATION
     Dosage: 200MG PER DAY
     Route: 042
  12. FRAGMIN [Suspect]
     Indication: DRUG USE FOR UNKNOWN INDICATION
     Dosage: 2500IU PER DAY
     Route: 065
  13. FUROSEMIDE [Suspect]
     Indication: DRUG USE FOR UNKNOWN INDICATION
     Dosage: 20MG TWICE PER DAY
     Route: 042
  14. FUROSEMIDE [Suspect]
     Dosage: 20MG PER DAY
     Route: 048
  15. HYDROCORTISONE [Suspect]
     Indication: DRUG USE FOR UNKNOWN INDICATION
     Dosage: 100MG SINGLE DOSE
     Route: 065
  16. LACTULOSE [Suspect]
     Indication: DRUG USE FOR UNKNOWN INDICATION
     Route: 065
  17. LANSOPRAZOLE [Suspect]
     Indication: DRUG USE FOR UNKNOWN INDICATION
     Route: 065
  18. LORAZEPAM [Suspect]
     Indication: DRUG USE FOR UNKNOWN INDICATION
     Route: 065
  19. MAGNESIUM SULFATE [Suspect]
     Indication: DRUG USE FOR UNKNOWN INDICATION
     Route: 065
  20. NORADRENALINE [Suspect]
     Indication: DRUG USE FOR UNKNOWN INDICATION
     Route: 065
  21. OMEPRAZOLE [Suspect]
     Indication: DRUG USE FOR UNKNOWN INDICATION
     Route: 042
  22. ACETAMINOPHEN [Suspect]
     Indication: DRUG USE FOR UNKNOWN INDICATION
     Route: 065
  23. PIRITON [Suspect]
     Indication: DRUG USE FOR UNKNOWN INDICATION
     Dosage: 10MG FOUR TIMES PER DAY
     Route: 042
  24. POTASSIUM CHLORIDE [Suspect]
     Indication: DRUG USE FOR UNKNOWN INDICATION
     Route: 065
  25. POTASSIUM PHOSPHATES [Suspect]
     Indication: DRUG USE FOR UNKNOWN INDICATION
     Route: 065
  26. PROPOFOL [Suspect]
     Indication: DRUG USE FOR UNKNOWN INDICATION
     Route: 065
  27. VENTOLIN [Suspect]
     Indication: DRUG USE FOR UNKNOWN INDICATION
     Route: 065
  28. SANDO-K [Suspect]
     Indication: DRUG USE FOR UNKNOWN INDICATION
     Route: 065
  29. SILVER SULPHADIAZINE [Suspect]
     Indication: DRUG USE FOR UNKNOWN INDICATION
     Route: 061
  30. SIMVASTATIN [Suspect]
     Indication: DRUG USE FOR UNKNOWN INDICATION
     Dosage: 40MG PER DAY
     Route: 065
  31. SODIUM BICARBONATE [Suspect]
     Indication: DRUG USE FOR UNKNOWN INDICATION
     Route: 042
  32. SODIUM CHLORIDE 0.9% [Suspect]
     Indication: DRUG USE FOR UNKNOWN INDICATION
     Route: 042
  33. THIAMIN [Suspect]
     Indication: DRUG USE FOR UNKNOWN INDICATION
     Dosage: 100MG PER DAY
     Route: 048
  34. TINZAPARIN [Suspect]
     Indication: DRUG USE FOR UNKNOWN INDICATION
     Dosage: 3500MCL PER DAY
     Route: 065
  35. VITAMIN K [Suspect]
     Indication: DRUG USE FOR UNKNOWN INDICATION
     Route: 065
  36. AMOXICILLIN [Concomitant]
     Route: 048
     Dates: start: 20060913
  37. ASPIRIN [Concomitant]
     Route: 048
  38. ATROVENT [Concomitant]
  39. CIPROFLOXACIN [Concomitant]
     Dosage: 400MG PER DAY
     Route: 042
  40. AMOXICILLIN + CLAVULANATE POTASSIUM [Concomitant]
     Dosage: 375MG THREE TIMES PER DAY
     Dates: start: 20060913
  41. ERYTHROMYCIN [Concomitant]
  42. METOCLOPRAMIDE [Concomitant]
     Route: 042
  43. MIDODRINE [Concomitant]
     Route: 048
  44. PANTOPRAZOLE SODIUM [Concomitant]
     Route: 042
  45. PIPERACILLIN AND TAZOBACTAM [Concomitant]
     Dosage: 4.5G THREE TIMES PER DAY
  46. VANCOMYCIN [Concomitant]
     Dosage: 1G PER DAY
     Route: 042
  47. ZOPICLONE [Concomitant]
     Route: 048

REACTIONS (1)
  - TOXIC EPIDERMAL NECROLYSIS [None]
